FAERS Safety Report 11278715 (Version 1)
Quarter: 2015Q3

REPORT INFORMATION
  Report Type: Report from Study
  Country: US (occurrence: US)
  Receive Date: 20150717
  Receipt Date: 20150717
  Transmission Date: 20151125
  Serious: Yes (Other)
  Sender: FDA-Public Use
  Company Number: US-BIOGENIDEC-2015BI096871

PATIENT
  Age: 65 Year
  Sex: Male

DRUGS (20)
  1. NABUMENTONE [Concomitant]
  2. PLAVIX [Concomitant]
     Active Substance: CLOPIDOGREL BISULFATE
  3. ACIPHEX [Concomitant]
     Active Substance: RABEPRAZOLE SODIUM
  4. CRESTOR [Concomitant]
     Active Substance: ROSUVASTATIN CALCIUM
  5. AMIODARONE [Concomitant]
     Active Substance: AMIODARONE
  6. AVONEX [Suspect]
     Active Substance: INTERFERON BETA-1A
     Indication: MULTIPLE SCLEROSIS
     Route: 030
  7. ATENOLOL. [Concomitant]
     Active Substance: ATENOLOL
  8. CYCLOBENZAPRINE [Concomitant]
     Active Substance: CYCLOBENZAPRINE
  9. ASPIRIN. [Concomitant]
     Active Substance: ASPIRIN
  10. CALCIUM [Concomitant]
     Active Substance: CALCIUM
  11. NIASPAN [Concomitant]
     Active Substance: NIACIN
  12. SOLUMEDROL INFUSION [Concomitant]
  13. VIT B-12 [Concomitant]
  14. AMPYRA [Concomitant]
     Active Substance: DALFAMPRIDINE
  15. ENABLEX [Concomitant]
     Active Substance: DARIFENACIN\DARIFENACIN HYDROBROMIDE
  16. LISINOPRIL. [Concomitant]
     Active Substance: LISINOPRIL
  17. FISH OIL [Concomitant]
     Active Substance: FISH OIL
  18. VITAMIN D [Concomitant]
     Active Substance: CHOLECALCIFEROL
  19. SERTRALINE [Concomitant]
     Active Substance: SERTRALINE HYDROCHLORIDE
  20. NITROSTAT [Concomitant]
     Active Substance: NITROGLYCERIN

REACTIONS (2)
  - Thrombosis [Unknown]
  - Colectomy [Unknown]

NARRATIVE: CASE EVENT DATE: 201408
